FAERS Safety Report 11827539 (Version 1)
Quarter: 2015Q4

REPORT INFORMATION
  Report Type: Spontaneous
  Country: CH (occurrence: CH)
  Receive Date: 20151211
  Receipt Date: 20151211
  Transmission Date: 20160305
  Serious: Yes (Life-Threatening)
  Sender: FDA-Public Use
  Company Number: CH-TEVA-616943ISR

PATIENT
  Age: 58 Year
  Sex: Female

DRUGS (1)
  1. GLATIRAMER ACETATE. [Suspect]
     Active Substance: GLATIRAMER ACETATE
     Route: 058
     Dates: start: 2006

REACTIONS (1)
  - Embolia cutis medicamentosa [Unknown]

NARRATIVE: CASE EVENT DATE: 2007
